FAERS Safety Report 17186048 (Version 1)
Quarter: 2019Q4

REPORT INFORMATION
  Report Type: Spontaneous
  Country: US (occurrence: US)
  Receive Date: 20191220
  Receipt Date: 20191220
  Transmission Date: 20200122
  Serious: Yes (Death, Disabling, Other)
  Sender: FDA-Public Use
  Company Number: US-REGENERON PHARMACEUTICALS, INC.-2019-73259

PATIENT

DRUGS (2)
  1. RADIOTHERAPY [Suspect]
     Active Substance: RADIATION THERAPY
     Indication: PROSTATIC DISORDER
  2. EYLEA [Suspect]
     Active Substance: AFLIBERCEPT
     Indication: EYE DISORDER
     Route: 031

REACTIONS (9)
  - Cataract [Unknown]
  - Anxiety [Unknown]
  - Unevaluable event [Unknown]
  - Death [Fatal]
  - Blindness [Unknown]
  - Pain [Unknown]
  - Off label use [Unknown]
  - Nerve injury [Unknown]
  - Infection [Unknown]
